FAERS Safety Report 9710071 (Version 2)
Quarter: 2014Q1

REPORT INFORMATION
  Report Type: Spontaneous
  Country: US (occurrence: US)
  Receive Date: 20131126
  Receipt Date: 20140102
  Transmission Date: 20141002
  Serious: Yes (Other)
  Sender: FDA-Public Use
  Company Number: US-009507513-1311USA002152

PATIENT
  Age: 64 Year
  Sex: Female
  Weight: 135.15 kg

DRUGS (9)
  1. VICTRELIS [Suspect]
     Indication: HEPATITIS C
     Dosage: 800 MG, TID
     Route: 048
     Dates: start: 201310
  2. PEGASYS [Suspect]
     Indication: HEPATITIS C
     Dosage: UNK
     Route: 058
  3. REBETOL [Suspect]
     Indication: HEPATITIS C
     Dosage: UNK
     Route: 048
  4. PRILOSEC [Concomitant]
     Indication: GASTROOESOPHAGEAL REFLUX DISEASE
     Dosage: UNK
     Route: 048
  5. LABETALOL HYDROCHLORIDE [Concomitant]
     Indication: HYPERTENSION
     Dosage: UNK
  6. LASIX (FUROSEMIDE SODIUM) [Concomitant]
     Indication: HYPERTENSION
     Dosage: UNK
  7. CATAPRES [Concomitant]
     Indication: HYPERTENSION
     Dosage: UNK
  8. VITAMIN D (UNSPECIFIED) [Concomitant]
     Dosage: UNK
  9. PRINIVIL [Concomitant]
     Indication: HYPERTENSION
     Dosage: UNK
     Route: 048

REACTIONS (5)
  - Discomfort [Recovered/Resolved]
  - Nausea [Recovered/Resolved]
  - Decreased appetite [Recovered/Resolved]
  - Drug dose omission [Unknown]
  - Dysgeusia [Recovered/Resolved]
